FAERS Safety Report 12995073 (Version 1)
Quarter: 2016Q4

REPORT INFORMATION
  Report Type: Spontaneous
  Country: US (occurrence: US)
  Receive Date: 20161202
  Receipt Date: 20161202
  Transmission Date: 20170207
  Serious: No
  Sender: FDA-Public Use
  Company Number: US-TEVA-717026ACC

PATIENT
  Age: 35 Year
  Sex: Female

DRUGS (6)
  1. HYDROMORPHONE [Concomitant]
     Active Substance: HYDROMORPHONE
  2. TIZANIDINE. [Concomitant]
     Active Substance: TIZANIDINE
  3. COPAXONE [Suspect]
     Active Substance: GLATIRAMER ACETATE
     Indication: MULTIPLE SCLEROSIS
     Route: 058
     Dates: start: 20160630, end: 20161006
  4. PREVACID [Concomitant]
     Active Substance: LANSOPRAZOLE
  5. POTASSIUM [Concomitant]
     Active Substance: POTASSIUM
  6. ATIVAN [Concomitant]
     Active Substance: LORAZEPAM

REACTIONS (4)
  - Paraesthesia [Unknown]
  - Pain in extremity [Unknown]
  - Injection site reaction [Unknown]
  - Fall [Unknown]

NARRATIVE: CASE EVENT DATE: 201609
